FAERS Safety Report 19483630 (Version 1)
Quarter: 2021Q3

REPORT INFORMATION
  Report Type: Other
  Country: US (occurrence: US)
  Receive Date: 20210701
  Receipt Date: 20210701
  Transmission Date: 20211014
  Serious: No
  Sender: FDA-Public Use
  Company Number: US-ROCHE-2686603

PATIENT
  Age: 4 Year
  Sex: Female

DRUGS (6)
  1. CLONAZEPAM. [Suspect]
     Active Substance: CLONAZEPAM
     Indication: RASMUSSEN ENCEPHALITIS
     Route: 065
  2. PYRIDOXINE [Suspect]
     Active Substance: PYRIDOXINE
     Indication: RASMUSSEN ENCEPHALITIS
     Route: 065
  3. SUFENTANIL [Concomitant]
     Active Substance: SUFENTANIL
     Route: 042
  4. LEVETIRACETAM. [Suspect]
     Active Substance: LEVETIRACETAM
     Indication: RASMUSSEN ENCEPHALITIS
     Route: 065
  5. ISOFLURANE. [Concomitant]
     Active Substance: ISOFLURANE
  6. OXCARBAZEPINE. [Suspect]
     Active Substance: OXCARBAZEPINE
     Indication: RASMUSSEN ENCEPHALITIS
     Route: 065

REACTIONS (1)
  - Therapy non-responder [Unknown]
